FAERS Safety Report 7449475-4 (Version None)
Quarter: 2011Q2

REPORT INFORMATION
  Report Type: 
  Country: None (occurrence: None)
  Receive Date: 20110502
  Receipt Date: 20110418
  Transmission Date: 20111010
  Serious: Yes (Other)
  Sender: FDA-Public Use
  Company Number: US-BAYER-2011-034286

PATIENT
  Sex: Male
  Weight: 81 kg

DRUGS (1)
  1. ONE-A-DAY MEN'S HEALTH [Suspect]
     Dosage: UNK, PRN
     Route: 048

REACTIONS (2)
  - HYPOAESTHESIA [None]
  - MOVEMENT DISORDER [None]
